FAERS Safety Report 17296759 (Version 1)
Quarter: 2020Q1

REPORT INFORMATION
  Report Type: Spontaneous
  Country: PL (occurrence: PL)
  Receive Date: 20200121
  Receipt Date: 20200121
  Transmission Date: 20200409
  Serious: Yes (Death, Hospitalization)
  Sender: FDA-Public Use
  Company Number: PL-ASTRAZENECA-2020SE08208

PATIENT
  Age: 64 Year
  Sex: Female
  Weight: 48 kg

DRUGS (11)
  1. EUTHYROX [Concomitant]
     Active Substance: LEVOTHYROXINE SODIUM
     Indication: HYPOTHYROIDISM
     Dosage: 50UG/INHAL
     Route: 048
     Dates: start: 20191124
  2. ZOFENIL [Concomitant]
     Active Substance: ZOFENOPRIL
     Indication: HYPERTENSIVE HEART DISEASE
     Route: 048
     Dates: start: 20191124, end: 20191226
  3. BRILIQUE [Suspect]
     Active Substance: TICAGRELOR
     Indication: ACUTE MYOCARDIAL INFARCTION
     Route: 048
     Dates: start: 20191123, end: 20200102
  4. BETO 50 ZK [Suspect]
     Active Substance: METOPROLOL SUCCINATE
     Indication: ACUTE MYOCARDIAL INFARCTION
     Dosage: 50.0MG UNKNOWN
     Route: 048
     Dates: start: 20191124
  5. HEMOFER [Concomitant]
     Indication: ANAEMIA
     Dosage: ONCE PER DAY
     Route: 048
     Dates: start: 20191220, end: 20191225
  6. ZAHRON [Suspect]
     Active Substance: ROSUVASTATIN CALCIUM
     Indication: ACUTE MYOCARDIAL INFARCTION
     Dosage: 40.0MG UNKNOWN
     Route: 048
     Dates: start: 20191124, end: 20191225
  7. ACARD [Suspect]
     Active Substance: ASPIRIN
     Indication: ACUTE MYOCARDIAL INFARCTION
     Dosage: 75.0MG UNKNOWN
     Route: 048
     Dates: start: 20191123, end: 20191226
  8. METHOTREXAT [Concomitant]
     Active Substance: METHOTREXATE
     Indication: RHEUMATOID ARTHRITIS
     Dosage: ONCE PER WEEK
     Route: 048
     Dates: end: 20191223
  9. INTEGRILIN [Concomitant]
     Active Substance: EPTIFIBATIDE
     Dates: start: 20191123
  10. METYPRED [Suspect]
     Active Substance: METHYLPREDNISOLONE
     Indication: RHEUMATOID ARTHRITIS
     Dosage: 4.0MG UNKNOWN
     Route: 048
  11. IPP [Concomitant]
     Indication: ANTIPLATELET THERAPY
     Route: 048
     Dates: start: 20191124

REACTIONS (14)
  - Vomiting [Not Recovered/Not Resolved]
  - Pancytopenia [Not Recovered/Not Resolved]
  - Abdominal pain [Not Recovered/Not Resolved]
  - Purpura [Not Recovered/Not Resolved]
  - Conjunctival haemorrhage [Not Recovered/Not Resolved]
  - Anaemia [Not Recovered/Not Resolved]
  - Transaminases increased [Not Recovered/Not Resolved]
  - Haemorrhagic diathesis [Not Recovered/Not Resolved]
  - Epistaxis [Not Recovered/Not Resolved]
  - Thrombocytopenia [Not Recovered/Not Resolved]
  - Bleeding time prolonged [Not Recovered/Not Resolved]
  - Rhabdomyolysis [Not Recovered/Not Resolved]
  - Acute kidney injury [Fatal]
  - Myalgia [Not Recovered/Not Resolved]

NARRATIVE: CASE EVENT DATE: 20191223
